FAERS Safety Report 4974552-7 (Version None)
Quarter: 2006Q2

REPORT INFORMATION
  Report Type: 
  Country: None (occurrence: None)
  Receive Date: 20060410
  Receipt Date: 20060327
  Transmission Date: 20061013
  Serious: Yes (Hospitalization)
  Sender: FDA-Public Use
  Company Number: 2006042662

PATIENT
  Age: 10 Year
  Sex: Male

DRUGS (4)
  1. PREDNISOLONE [Suspect]
     Indication: RENAL TRANSPLANT
  2. TRACROLIMUS (TACROLIMUS) [Suspect]
     Indication: RENAL TRANSPLANT
  3. AZATHIOPRINE [Suspect]
     Indication: RENAL TRANSPLANT
  4. SIMULECT [Suspect]
     Indication: RENAL TRANSPLANT

REACTIONS (9)
  - ABDOMINAL ADHESIONS [None]
  - APPENDICITIS PERFORATED [None]
  - BLOOD CREATININE INCREASED [None]
  - DEHYDRATION [None]
  - DRUG TOXICITY [None]
  - IMMUNOSUPPRESSANT DRUG LEVEL INCREASED [None]
  - NEUTROPHIL COUNT INCREASED [None]
  - PERITONITIS [None]
  - WHITE BLOOD CELL COUNT DECREASED [None]
